FAERS Safety Report 4355935-5 (Version None)
Quarter: 2004Q2

REPORT INFORMATION
  Report Type: 
  Country: None (occurrence: None)
  Receive Date: 20040505
  Receipt Date: 20040423
  Transmission Date: 20050107
  Serious: Yes (Death, Life-Threatening)
  Sender: FDA-Public Use
  Company Number: 2004210876GB

PATIENT
  Age: 73 Year
  Sex: Male

DRUGS (4)
  1. ARTHROTEC [Suspect]
     Indication: ARTHRALGIA
     Dosage: ORAL
     Route: 048
     Dates: start: 20030201
  2. FELDENE [Suspect]
     Indication: ARTHRALGIA
     Dates: start: 20030730
  3. CO-CODAMOL [Concomitant]
  4. CO-PROXAMOL (DEXTROPROPOXYPHENE HYDROCHLORIDE) [Concomitant]

REACTIONS (4)
  - CIRCULATORY COLLAPSE [None]
  - DUODENAL ULCER PERFORATION [None]
  - MELAENA [None]
  - RENAL FAILURE [None]
